FAERS Safety Report 9046339 (Version 1)
Quarter: 2013Q1

REPORT INFORMATION
  Report Type: Report from Study
  Country: US (occurrence: US)
  Receive Date: 20130201
  Receipt Date: 20130201
  Transmission Date: 20140127
  Serious: Yes (Other)
  Sender: FDA-Public Use
  Company Number: US-JNJFOC-20130113612

PATIENT
  Sex: Female
  Weight: 83.92 kg

DRUGS (2)
  1. DOXORUBICIN HYDROCHLORIDE (DOXIL) [Suspect]
     Indication: OVARIAN CANCER RECURRENT
     Route: 042
     Dates: start: 201212
  2. DOXORUBICIN HYDROCHLORIDE (DOXIL) [Suspect]
     Indication: OVARIAN CANCER RECURRENT
     Route: 042
     Dates: start: 20120927, end: 201212

REACTIONS (14)
  - Foot fracture [Recovered/Resolved]
  - Fungal infection [Recovered/Resolved]
  - Mucosal inflammation [Recovered/Resolved]
  - Pain in extremity [Recovering/Resolving]
  - Blister [Recovering/Resolving]
  - Skin exfoliation [Recovered/Resolved]
  - Nail disorder [Recovered/Resolved]
  - Rash [Unknown]
  - Dry skin [Not Recovered/Not Resolved]
  - Paraesthesia [Not Recovered/Not Resolved]
  - Onychomadesis [Not Recovered/Not Resolved]
  - Hypoaesthesia [Recovering/Resolving]
  - Gingival pain [Recovered/Resolved]
  - Oral pain [Recovered/Resolved]
